FAERS Safety Report 5896737-8 (Version None)
Quarter: 2008Q3

REPORT INFORMATION
  Report Type: 
  Country: None (occurrence: None)
  Receive Date: 20080924
  Receipt Date: 20071019
  Transmission Date: 20090109
  Serious: Yes (Life-Threatening, Hospitalization)
  Sender: FDA-Public Use
  Company Number: US-ASTRAZENECA-2007UW24328

PATIENT
  Age: 56 Year
  Sex: Female

DRUGS (3)
  1. SEROQUEL [Suspect]
     Route: 048
  2. CYMBALTA [Concomitant]
  3. GLYBURIDE [Concomitant]

REACTIONS (2)
  - COMA [None]
  - OVERDOSE [None]
